FAERS Safety Report 4434152-4 (Version None)
Quarter: 2004Q3

REPORT INFORMATION
  Report Type: 
  Country: None (occurrence: None)
  Receive Date: 20040826
  Receipt Date: 20040816
  Transmission Date: 20050211
  Serious: Yes (Other)
  Sender: FDA-Public Use
  Company Number: PHFR2004GB03206

PATIENT
  Age: 77 Year
  Sex: Male

DRUGS (9)
  1. DICLOFENAC [Suspect]
     Indication: PAIN
     Dosage: 75 MG, BID
     Route: 048
     Dates: start: 20040316, end: 20040318
  2. PARACETAMOL [Concomitant]
     Dosage: 1 G, QID
     Route: 065
  3. DIGOXIN [Concomitant]
     Dosage: 187.5UG/DAY
     Route: 065
  4. TEMAZEPAM [Concomitant]
     Dosage: 20MG/ON
     Route: 065
  5. ASPIRIN [Concomitant]
     Dosage: 75MG/DAY
     Route: 065
  6. CO-DANTHRAMER [Concomitant]
     Route: 065
  7. CO-PROXAMOL [Concomitant]
     Dosage: 2 UNK, QID
     Route: 065
  8. ZOTON [Concomitant]
     Dosage: 30MG/DAY
     Route: 065
  9. DEXAMETHASONE [Concomitant]
     Dosage: 2 MG, TID
     Route: 065

REACTIONS (2)
  - CANCER PAIN [None]
  - CONDITION AGGRAVATED [None]
